FAERS Safety Report 4472736-8 (Version None)
Quarter: 2004Q4

REPORT INFORMATION
  Report Type: 
  Country: None (occurrence: None)
  Receive Date: 20041008
  Receipt Date: 20040917
  Transmission Date: 20050328
  Serious: Yes (Death, Life-Threatening)
  Sender: FDA-Public Use
  Company Number: DE_040914309

PATIENT
  Age: 75 Year
  Sex: Female

DRUGS (7)
  1. GEMZAR [Suspect]
     Indication: BREAST CANCER
     Dosage: 1000 MG/M2
     Dates: start: 20031216, end: 20040326
  2. DEXAMETHASONE [Concomitant]
  3. COTRIM D.S. [Concomitant]
  4. BLOPRESS (CANDESARTAN CILEXETIL) [Concomitant]
  5. DIGITOXIN TAB [Concomitant]
  6. PAMIDRONATE DISODIUM [Concomitant]
  7. KEVATRIL (GRANISETRON HYDROCHLORIDE) [Concomitant]

REACTIONS (2)
  - CARDIAC FAILURE ACUTE [None]
  - GENERAL PHYSICAL HEALTH DETERIORATION [None]
